FAERS Safety Report 11423668 (Version 1)
Quarter: 2015Q3

REPORT INFORMATION
  Report Type: Report from Study
  Country: US (occurrence: US)
  Receive Date: 20150827
  Receipt Date: 20150827
  Transmission Date: 20151125
  Serious: Yes (Hospitalization, Other)
  Sender: FDA-Public Use
  Company Number: US-ASTELLAS-2015US024913

PATIENT
  Age: 55 Year
  Sex: Male

DRUGS (16)
  1. OMEPRAZOLE. [Concomitant]
     Active Substance: OMEPRAZOLE
     Indication: PRODUCT USED FOR UNKNOWN INDICATION
     Route: 048
  2. ERLOTINIB [Suspect]
     Active Substance: ERLOTINIB
     Indication: EMBOLISM VENOUS
  3. XELODA [Suspect]
     Active Substance: CAPECITABINE
     Indication: OESOPHAGEAL CARCINOMA
     Dosage: UNK, UNKNOWN FREQ.
     Route: 065
  4. COMPAZINE [Concomitant]
     Active Substance: PROCHLORPERAZINE MALEATE
     Indication: NAUSEA
     Route: 048
  5. OXYCONTIN [Concomitant]
     Active Substance: OXYCODONE HYDROCHLORIDE
     Indication: PRODUCT USED FOR UNKNOWN INDICATION
     Dosage: UNK UNK, UNKNOWN FREQ.
     Route: 065
  6. GELCLAIR                           /01702001/ [Concomitant]
     Indication: PRODUCT USED FOR UNKNOWN INDICATION
     Dosage: UNK UNK, THRICE DAILY
     Route: 048
  7. ERLOTINIB [Suspect]
     Active Substance: ERLOTINIB
     Indication: OESOPHAGEAL CARCINOMA
     Dosage: UNK, UNKNOWN FREQ.
     Route: 065
  8. BACLOFEN. [Concomitant]
     Active Substance: BACLOFEN
     Indication: COUGH
     Route: 048
  9. MITOMYCIN. [Concomitant]
     Active Substance: MITOMYCIN
     Indication: PRODUCT USED FOR UNKNOWN INDICATION
     Dosage: UNK UNK, UNKNOWN FREQ.
     Route: 065
  10. NEURONTIN [Concomitant]
     Active Substance: GABAPENTIN
     Route: 048
  11. DILAUDID [Concomitant]
     Active Substance: HYDROMORPHONE HYDROCHLORIDE
     Indication: PAIN
     Dosage: 4 MG, OTHER, 1 IN 3 HR
     Route: 048
  12. FRAGMIN [Concomitant]
     Active Substance: DALTEPARIN SODIUM
     Indication: PRODUCT USED FOR UNKNOWN INDICATION
     Dosage: 0.6 ML, ONCE DAILY
     Route: 058
  13. XELODA [Suspect]
     Active Substance: CAPECITABINE
     Indication: EMBOLISM VENOUS
  14. PERCOCET [Concomitant]
     Active Substance: ACETAMINOPHEN\OXYCODONE HYDROCHLORIDE
     Indication: PRODUCT USED FOR UNKNOWN INDICATION
     Route: 065
  15. 5-FLUOROURACIL                     /00098801/ [Concomitant]
     Active Substance: FLUOROURACIL
     Indication: PRODUCT USED FOR UNKNOWN INDICATION
     Dosage: UNK UNK, UNKNOWN FREQ.
     Route: 065
  16. NEURONTIN [Concomitant]
     Active Substance: GABAPENTIN
     Indication: CERVICAL RADICULOPATHY
     Route: 048

REACTIONS (36)
  - Penile erythema [Unknown]
  - Hyperhidrosis [Unknown]
  - Arthralgia [Unknown]
  - Back pain [Unknown]
  - Rash pruritic [Unknown]
  - Pseudomonas infection [Unknown]
  - Dysaesthesia [Unknown]
  - Balance disorder [Unknown]
  - Fatigue [Unknown]
  - Vomiting [Unknown]
  - Lip neoplasm [Unknown]
  - Pollakiuria [Unknown]
  - Neck pain [Unknown]
  - Paraesthesia [Unknown]
  - Dizziness [Unknown]
  - Lethargy [Unknown]
  - Musculoskeletal pain [Unknown]
  - Rash [Unknown]
  - Oral pain [Unknown]
  - Pain in extremity [Unknown]
  - Chest pain [Unknown]
  - Dehydration [Recovered/Resolved]
  - Diarrhoea [Recovered/Resolved]
  - Skin exfoliation [Unknown]
  - Neuropathy peripheral [Unknown]
  - Feeling abnormal [Unknown]
  - Body temperature fluctuation [Unknown]
  - Anxiety [Unknown]
  - Oedema [Unknown]
  - Flank pain [Unknown]
  - Asthenia [Unknown]
  - Abdominal pain [Recovered/Resolved]
  - Erectile dysfunction [Unknown]
  - Flatulence [Unknown]
  - Nausea [Unknown]
  - Weight decreased [Unknown]

NARRATIVE: CASE EVENT DATE: 20091021
